FAERS Safety Report 6173878-1 (Version None)
Quarter: 2009Q2

REPORT INFORMATION
  Report Type: 
  Country: None (occurrence: None)
  Receive Date: 20090428
  Receipt Date: 20090214
  Transmission Date: 20091009
  Serious: Yes (Life-Threatening)
  Sender: FDA-Public Use
  Company Number: 2009030057

PATIENT
  Age: 57 Year
  Sex: Male

DRUGS (5)
  1. VOLUVEN [Suspect]
     Indication: HYPOVOLAEMIA
     Dosage: 500 ML
     Dates: start: 20081001, end: 20081001
  2. ATROPINE (ATROPINE) (ATROPINE) [Concomitant]
  3. DIPRIVAN [Concomitant]
  4. ULTIVA (REMIFENTANIL HYDROCHLORIDE) (FEMIFENTANIL HYDROCHLORIDE) [Concomitant]
  5. NIMBEX (CISATRACURIUM BESILATE) (CISATRACURIUM BESILATE) [Concomitant]

REACTIONS (2)
  - CARDIAC ARREST [None]
  - VENTRICULAR TACHYCARDIA [None]
